FAERS Safety Report 15771085 (Version 1)
Quarter: 2018Q4

REPORT INFORMATION
  Report Type: Report from Study
  Country: US (occurrence: US)
  Receive Date: 20181228
  Receipt Date: 20181228
  Transmission Date: 20190205
  Serious: Yes (Hospitalization)
  Sender: FDA-Public Use
  Company Number: PHHY2018US194034

PATIENT
  Age: 79 Year
  Sex: Male

DRUGS (3)
  1. ALDACTONE [Concomitant]
     Active Substance: SPIRONOLACTONE
     Indication: OEDEMA PERIPHERAL
     Dosage: 50 MG, QD (25 MG,2 IN 1 D)
     Route: 048
     Dates: start: 20181023, end: 20181207
  2. AFINITOR [Suspect]
     Active Substance: EVEROLIMUS
     Indication: RENAL CELL CARCINOMA
     Dosage: 7.5 MG, QD
     Route: 048
     Dates: start: 20180829, end: 20181206
  3. LASIX [Concomitant]
     Active Substance: FUROSEMIDE
     Indication: OEDEMA PERIPHERAL
     Dosage: 40 MG, QD
     Route: 048
     Dates: start: 20181015, end: 20181207

REACTIONS (5)
  - Urine output decreased [Unknown]
  - Fall [Unknown]
  - Acute kidney injury [Unknown]
  - Blood pressure decreased [Unknown]
  - Dizziness [Unknown]
